FAERS Safety Report 9838079 (Version 4)
Quarter: 2014Q3

REPORT INFORMATION
  Report Type: Report from Study
  Country: US (occurrence: US)
  Receive Date: 20140123
  Receipt Date: 20140915
  Transmission Date: 20150326
  Serious: Yes (Other)
  Sender: FDA-Public Use
  Company Number: US-BAXTER-2014BAX002215

PATIENT
  Age: 18 Year
  Sex: Male
  Weight: 99.79 kg

DRUGS (8)
  1. BUDESONIDE. [Concomitant]
     Active Substance: BUDESONIDE
     Indication: NASAL CONGESTION
     Dosage: INTRANASAL NEBULIZER
     Route: 055
     Dates: start: 201201
  2. IMITREX [Concomitant]
     Active Substance: SUMATRIPTAN\SUMATRIPTAN SUCCINATE
     Indication: MIGRAINE
     Dosage: AS NEEDED
     Route: 065
  3. GAMMAGARD LIQUID [Suspect]
     Active Substance: HUMAN IMMUNOGLOBULIN G
     Indication: SELECTIVE IGG SUBCLASS DEFICIENCY
     Route: 042
     Dates: start: 201201
  4. ZONISAMIDE. [Concomitant]
     Active Substance: ZONISAMIDE
     Indication: MIGRAINE PROPHYLAXIS
     Route: 048
     Dates: start: 201312
  5. GAMMAGARD LIQUID [Suspect]
     Active Substance: HUMAN IMMUNOGLOBULIN G
     Route: 042
     Dates: start: 20140426, end: 20140426
  6. SINGULAIR [Concomitant]
     Active Substance: MONTELUKAST SODIUM
     Indication: NASAL CONGESTION
     Route: 048
  7. DYMISTA [Concomitant]
     Active Substance: AZELASTINE HYDROCHLORIDE\FLUTICASONE PROPIONATE
     Indication: NASAL CONGESTION
     Dosage: 137/50 MILLIGRAMS, INTRANASAL
     Route: 045
     Dates: start: 2013
  8. CLARITIN-D 12 HOUR [Concomitant]
     Active Substance: LORATADINE\PSEUDOEPHEDRINE SULFATE
     Indication: NASAL CONGESTION
     Route: 048

REACTIONS (12)
  - Arthralgia [Recovered/Resolved]
  - Pain [Recovered/Resolved]
  - Feeling abnormal [Recovered/Resolved]
  - Blood pressure increased [Recovered/Resolved]
  - Migraine [Not Recovered/Not Resolved]
  - Pruritus [Recovered/Resolved]
  - Abdominal pain [Not Recovered/Not Resolved]
  - Chills [Recovered/Resolved]
  - Headache [Not Recovered/Not Resolved]
  - Sinusitis [Recovering/Resolving]
  - Diarrhoea [Not Recovered/Not Resolved]
  - Blood immunoglobulin G increased [Unknown]

NARRATIVE: CASE EVENT DATE: 201309
